FAERS Safety Report 5446461-0 (Version None)
Quarter: 2007Q3

REPORT INFORMATION
  Report Type: 
  Country: None (occurrence: None)
  Receive Date: 20070907
  Receipt Date: 20070904
  Transmission Date: 20080115
  Serious: Yes (Hospitalization)
  Sender: FDA-Public Use
  Company Number: FR-ASTRAZENECA-2007CG01262

PATIENT
  Age: 85 Year
  Sex: Male
  Weight: 90 kg

DRUGS (6)
  1. NEXIUM [Suspect]
     Route: 048
  2. PREVISCAN [Interacting]
     Route: 048
     Dates: end: 20070613
  3. IRBESARTAN [Concomitant]
     Route: 048
  4. GARDAN TAB [Concomitant]
     Route: 048
  5. LASIX [Concomitant]
     Route: 048
     Dates: end: 20070611
  6. LASIX [Concomitant]
     Route: 048
     Dates: start: 20070612

REACTIONS (4)
  - BLOOD CREATININE INCREASED [None]
  - DRUG INTERACTION [None]
  - INTERNATIONAL NORMALISED RATIO INCREASED [None]
  - PROTHROMBIN LEVEL DECREASED [None]
